FAERS Safety Report 18657001 (Version 3)
Quarter: 2021Q1

REPORT INFORMATION
  Report Type: Spontaneous
  Country: US (occurrence: US)
  Receive Date: 20201224
  Receipt Date: 20210101
  Transmission Date: 20210419
  Serious: Yes (Other)
  Sender: FDA-Public Use
  Company Number: US-AMGEN-USASP2020207061

PATIENT
  Age: 55 Year
  Sex: Male

DRUGS (6)
  1. ACETAMINOPHEN. [Concomitant]
     Active Substance: ACETAMINOPHEN
     Dosage: 500 MILLIGRAM, AS NECESSARY
     Route: 048
  2. ASPIRIN 81 [Concomitant]
     Active Substance: ASPIRIN
     Dosage: 81 MILLIGRAM, QD 1 DAILY?NONE FOR 2 MOTITHS
     Route: 048
     Dates: start: 202001, end: 202003
  3. EXCEDRIN MIGRAINE [Concomitant]
     Active Substance: ACETAMINOPHEN\ASPIRIN\CAFFEINE
     Dosage: UNK UNK, AS NECESSARY, 250?250?65 MILLIGRAM
     Route: 048
  4. REPATHA [Suspect]
     Active Substance: EVOLOCUMAB
     Indication: PRODUCT USED FOR UNKNOWN INDICATION
     Dosage: 140 MILLIGRAM, Q2WK
     Route: 065
  5. TYLENOL PM, EXTRA STRENGTH [Concomitant]
     Dosage: UNK UNK, AS NECESSARY, 500?25 MILLIGRAM
     Route: 048
  6. IBUPROFEN. [Concomitant]
     Active Substance: IBUPROFEN
     Dosage: 200 MILLIGRAM
     Route: 048

REACTIONS (11)
  - Male sexual dysfunction [Unknown]
  - Back pain [Recovered/Resolved]
  - Malaise [Unknown]
  - Aortic valve disease mixed [Unknown]
  - Pain in extremity [Unknown]
  - Pollakiuria [Unknown]
  - Urine flow decreased [Unknown]
  - Dyspnoea [Unknown]
  - Dysuria [Unknown]
  - Testicular pain [Unknown]
  - Peripheral swelling [Unknown]

NARRATIVE: CASE EVENT DATE: 20200311
